FAERS Safety Report 8434788 (Version 3)
Quarter: 2014Q4

REPORT INFORMATION
  Report Type: Spontaneous
  Country: US (occurrence: US)
  Receive Date: 20120301
  Receipt Date: 20141024
  Transmission Date: 20150529
  Serious: Yes (Hospitalization, Congenital Anomaly, Other)
  Sender: FDA-Public Use
  Company Number: US-FRI-1000028169

PATIENT
  Age: 0 Year
  Sex: Male

DRUGS (2)
  1. LEXAPRO [Suspect]
     Active Substance: ESCITALOPRAM OXALATE
     Indication: SLEEP DISORDER
  2. LEXAPRO [Suspect]
     Active Substance: ESCITALOPRAM OXALATE
     Indication: ANXIETY
     Dosage: 10 MG
     Route: 064
     Dates: start: 200409, end: 20050429

REACTIONS (13)
  - Right ventricular hypertrophy [Unknown]
  - Ventricular septal defect [Unknown]
  - Hypovolaemia [Unknown]
  - Atrial septal defect [Unknown]
  - Premature baby [Recovered/Resolved]
  - Inguinal hernia [Unknown]
  - Coarctation of the aorta [Unknown]
  - Atrioventricular block complete [Unknown]
  - Device malfunction [Unknown]
  - Umbilical cord abnormality [Recovered/Resolved]
  - Respiratory distress [Unknown]
  - Pulmonary artery stenosis [Unknown]
  - Autism [Unknown]

NARRATIVE: CASE EVENT DATE: 2005
